FAERS Safety Report 18297492 (Version 2)
Quarter: 2020Q4

REPORT INFORMATION
  Report Type: Spontaneous
  Country: AR (occurrence: AR)
  Receive Date: 20200922
  Receipt Date: 20201016
  Transmission Date: 20210113
  Serious: Yes (Death, Life-Threatening)
  Sender: FDA-Public Use
  Company Number: AR-PFIZER INC-2020364513

PATIENT
  Age: 58 Year
  Sex: Female

DRUGS (2)
  1. IBRANCE [Suspect]
     Active Substance: PALBOCICLIB
     Indication: BREAST CANCER METASTATIC
     Dosage: 100 MG, CYCLIC (SCHEME 3/1)
     Dates: start: 20190627
  2. LETROZOL [Concomitant]
     Active Substance: LETROZOLE
     Dosage: UNK

REACTIONS (2)
  - Terminal state [Unknown]
  - Death [Fatal]

NARRATIVE: CASE EVENT DATE: 2020
